FAERS Safety Report 22070843 (Version 10)
Quarter: 2024Q3

REPORT INFORMATION
  Report Type: Spontaneous
  Country: JP (occurrence: JP)
  Receive Date: 20230307
  Receipt Date: 20240928
  Transmission Date: 20241017
  Serious: Yes (Hospitalization, Other)
  Sender: BAXTER
  Company Number: JP-BAXTER-2023BAX014458

PATIENT
  Age: 37 Year
  Sex: Male
  Weight: 55.4 kg

DRUGS (59)
  1. CYCLOPHOSPHAMIDE [Suspect]
     Active Substance: CYCLOPHOSPHAMIDE
     Indication: Product used for unknown indication
     Dosage: 40 MG/KG/DAY, CONDITIONING REGIMEN, ADMINISTERED ONLY FOR THIS DAY
     Route: 065
     Dates: start: 20230125, end: 20230125
  2. TACROLIMUS [Suspect]
     Active Substance: TACROLIMUS
     Indication: Prophylaxis against transplant rejection
     Dosage: 3 MG/DAY, ADMINISTRATION CONTINUED
     Route: 048
     Dates: start: 20230221
  3. TACROLIMUS [Suspect]
     Active Substance: TACROLIMUS
     Dosage: 4 MG/DAY, INCREASED
     Route: 048
     Dates: start: 20230731
  4. TACROLIMUS [Suspect]
     Active Substance: TACROLIMUS
     Dosage: 2 MG/DAY, REDUCED
     Route: 048
     Dates: start: 20231125
  5. TACROLIMUS [Suspect]
     Active Substance: TACROLIMUS
     Dosage: 1.5 MG/DAY, REDUCED
     Route: 048
     Dates: start: 20231225
  6. TACROLIMUS [Suspect]
     Active Substance: TACROLIMUS
     Dosage: 1 MG/DAY
     Route: 048
     Dates: start: 20240415
  7. TACROLIMUS [Suspect]
     Active Substance: TACROLIMUS
     Dosage: 0.5 MG/DAY
     Route: 048
     Dates: start: 20240701
  8. TACROLIMUS [Suspect]
     Active Substance: TACROLIMUS
     Route: 048
     Dates: start: 20230221
  9. TACROLIMUS [Suspect]
     Active Substance: TACROLIMUS
     Route: 048
     Dates: start: 20230731
  10. TACROLIMUS [Suspect]
     Active Substance: TACROLIMUS
     Route: 048
     Dates: start: 20231125
  11. TACROLIMUS [Suspect]
     Active Substance: TACROLIMUS
     Route: 048
     Dates: start: 20231225
  12. TACROLIMUS [Suspect]
     Active Substance: TACROLIMUS
     Route: 048
     Dates: start: 20240415
  13. TACROLIMUS [Suspect]
     Active Substance: TACROLIMUS
     Route: 048
     Dates: start: 20240701
  14. PREDONINE [Suspect]
     Active Substance: PREDNISOLONE
     Indication: Transplant rejection
     Dosage: 30 MG/DAY
     Route: 048
     Dates: start: 20230309, end: 20230309
  15. PREDONINE [Suspect]
     Active Substance: PREDNISOLONE
     Dosage: 25 MG/DAY
     Route: 048
     Dates: start: 20230310, end: 20230312
  16. PREDONINE [Suspect]
     Active Substance: PREDNISOLONE
     Dosage: 20 MG/DAY
     Route: 048
     Dates: start: 20230313, end: 20230320
  17. PREDONINE [Suspect]
     Active Substance: PREDNISOLONE
     Dosage: 15 MG/DAY REDUCED
     Route: 048
     Dates: start: 20230321
  18. PREDONINE [Suspect]
     Active Substance: PREDNISOLONE
     Dosage: 10 MG/DAY, REDUCED
     Route: 048
     Dates: start: 20230420
  19. PREDONINE [Suspect]
     Active Substance: PREDNISOLONE
     Dosage: 5 MG/DAY, REDUCED
     Route: 048
     Dates: start: 20230516
  20. PREDONINE [Suspect]
     Active Substance: PREDNISOLONE
     Dosage: 2.5 MG/DAY, REDUCED
     Route: 048
     Dates: start: 20230613
  21. PREDONINE [Suspect]
     Active Substance: PREDNISOLONE
     Dosage: 20 MG/DAY
     Route: 048
     Dates: start: 20230718
  22. PREDONINE [Suspect]
     Active Substance: PREDNISOLONE
     Dosage: 60 MG/DAY
     Route: 048
     Dates: start: 20230801, end: 20230802
  23. PREDONINE [Suspect]
     Active Substance: PREDNISOLONE
     Dosage: 40 MG/DAY
     Route: 048
  24. PREDONINE [Suspect]
     Active Substance: PREDNISOLONE
     Dosage: 35 MG/DAY, TAPERED
     Route: 048
     Dates: start: 20230808, end: 20230828
  25. PREDONINE [Suspect]
     Active Substance: PREDNISOLONE
     Dosage: 20 MG/DAY, TAPERED
     Route: 048
     Dates: start: 20230829, end: 20230911
  26. PREDONINE [Suspect]
     Active Substance: PREDNISOLONE
     Dosage: 15 MG/DAY
     Route: 048
     Dates: start: 20230912, end: 20230929
  27. PREDONINE [Suspect]
     Active Substance: PREDNISOLONE
     Dosage: 10 MG/DAY
     Route: 048
     Dates: start: 20230930, end: 20231015
  28. PREDONINE [Suspect]
     Active Substance: PREDNISOLONE
     Dosage: 5 MG/DAY
     Route: 048
     Dates: start: 20231016, end: 20231110
  29. PREDONINE [Suspect]
     Active Substance: PREDNISOLONE
     Dosage: 2.5 MG/DAY
     Route: 048
     Dates: start: 20240415, end: 20240616
  30. PREDONINE [Suspect]
     Active Substance: PREDNISOLONE
     Dosage: 5 MG, ONCE A DAY
     Route: 048
     Dates: start: 20240907
  31. PREDONINE [Suspect]
     Active Substance: PREDNISOLONE
     Dosage: 20 MG, ONCE A DAY
     Route: 048
     Dates: start: 20240918
  32. EDOXABAN TOSYLATE [Concomitant]
     Active Substance: EDOXABAN TOSYLATE
     Indication: Thrombosis prophylaxis
     Dosage: 30 MG/DAY
     Route: 048
     Dates: start: 20230207
  33. FLUCONAZOLE [Concomitant]
     Active Substance: FLUCONAZOLE
     Indication: Infection prophylaxis
     Dosage: 100 MG/DAY
     Route: 048
     Dates: start: 20230201
  34. SULFAMETHOXAZOLE\TRIMETHOPRIM [Concomitant]
     Active Substance: SULFAMETHOXAZOLE\TRIMETHOPRIM
     Indication: Infection prophylaxis
     Dosage: 1 DOSAGE FORM/DAY
     Route: 048
     Dates: start: 20230130
  35. VALACYCLOVIR HYDROCHLORIDE [Concomitant]
     Active Substance: VALACYCLOVIR HYDROCHLORIDE
     Indication: Infection prophylaxis
     Dosage: 500 MG/DAY
     Route: 048
     Dates: start: 20230128
  36. RABEPRAZOLE SODIUM [Concomitant]
     Active Substance: RABEPRAZOLE SODIUM
     Indication: Gastritis prophylaxis
     Dosage: 10 MG/DAY
     Route: 048
     Dates: start: 20230128
  37. RABEPRAZOLE SODIUM [Concomitant]
     Active Substance: RABEPRAZOLE SODIUM
     Dosage: 10 MG/DAY
     Route: 048
     Dates: start: 20240129, end: 20240616
  38. REBAMIPIDE [Concomitant]
     Active Substance: REBAMIPIDE
     Indication: Gastritis prophylaxis
     Dosage: 300 MG/DAY (100 MG X EVERY 8 HOURS)
     Route: 048
     Dates: start: 20230128
  39. URSODIOL [Concomitant]
     Active Substance: URSODIOL
     Indication: Hypercholia
     Dosage: 200 MG X EVERY 8 HOURS (600 MG/DAY)
     Route: 048
     Dates: start: 20230128
  40. URSODIOL [Concomitant]
     Active Substance: URSODIOL
     Dosage: 200 MG, EVERY 12 HOURS
     Route: 048
     Dates: start: 20230515
  41. CALONAL [Concomitant]
     Active Substance: ACETAMINOPHEN
     Indication: Wound complication
     Dosage: 500 MG, AS NECESSARY
     Route: 048
     Dates: start: 20230201
  42. MEDROL [Concomitant]
     Active Substance: METHYLPREDNISOLONE
     Indication: Contrast media allergy
     Dosage: 32 MG/DAY
     Route: 048
     Dates: start: 20230203, end: 20230204
  43. HEBSBULIN IH [Concomitant]
     Indication: Antiviral prophylaxis
     Dosage: 14000 IU, 3000-14000, POLYETHYLENE GLYCOL TREATED ANTI-HBS HUMAN IMMUNOGLOBULIN
     Route: 041
     Dates: start: 20230120
  44. CELLCEPT [Concomitant]
     Active Substance: MYCOPHENOLATE MOFETIL
     Indication: Product used for unknown indication
     Dosage: 250 MG FOR 12 HOURS, RESUMED
     Route: 065
     Dates: start: 20230301
  45. CELLCEPT [Concomitant]
     Active Substance: MYCOPHENOLATE MOFETIL
     Dosage: 125 MG FOR 12 HOURS, TWICE DAILY, REDUCED
     Route: 065
     Dates: start: 20230321, end: 20230418
  46. MEROPENEM [Concomitant]
     Active Substance: MEROPENEM
     Indication: Product used for unknown indication
     Dosage: UNK, DRIP, HYDRATE
     Route: 065
     Dates: start: 20231203
  47. HUMAN IMMUNOGLOBULIN G [Concomitant]
     Active Substance: HUMAN IMMUNOGLOBULIN G
     Indication: Product used for unknown indication
     Dosage: UNK
     Route: 065
     Dates: start: 20231204
  48. CEFEPIME [Concomitant]
     Active Substance: CEFEPIME HYDROCHLORIDE
     Indication: Product used for unknown indication
     Dosage: HYDRATE
     Route: 042
     Dates: start: 20231207
  49. CEFACLOR [Concomitant]
     Active Substance: CEFACLOR
     Indication: Product used for unknown indication
     Dosage: UNK
     Route: 048
     Dates: start: 20231211, end: 20231225
  50. MAGNESIUM OXIDE [Concomitant]
     Active Substance: MAGNESIUM OXIDE
     Indication: Constipation
     Dosage: 1980 MG (MILLIGRAM), 1320-1980 MG
     Route: 048
     Dates: start: 20230306
  51. SOLU-MEDROL [Concomitant]
     Active Substance: METHYLPREDNISOLONE SODIUM SUCCINATE
     Indication: Product used for unknown indication
     Dosage: 500 MG/DAY, STEROID PULSE
     Route: 065
     Dates: start: 20230228, end: 20230302
  52. SOLU-MEDROL [Concomitant]
     Active Substance: METHYLPREDNISOLONE SODIUM SUCCINATE
     Dosage: 250 MG /DAY, STEROID PULSE
     Route: 065
     Dates: start: 20230303, end: 20230305
  53. SOLU-MEDROL [Concomitant]
     Active Substance: METHYLPREDNISOLONE SODIUM SUCCINATE
     Dosage: 125 MG /DAY, STEROID PULSE
     Route: 065
     Dates: start: 20230306, end: 20230306
  54. SOLU-MEDROL [Concomitant]
     Active Substance: METHYLPREDNISOLONE SODIUM SUCCINATE
     Dosage: 62.5 MG /DAY, STEROID PULSE
     Route: 065
     Dates: start: 20230307, end: 20230307
  55. SOLU-MEDROL [Concomitant]
     Active Substance: METHYLPREDNISOLONE SODIUM SUCCINATE
     Dosage: 40 MG /DAY, STEROID PULSE
     Route: 065
     Dates: start: 20230308, end: 20230308
  56. SOLU-MEDROL [Concomitant]
     Active Substance: METHYLPREDNISOLONE SODIUM SUCCINATE
     Dosage: 250 MG /DAY, STEROID PULSE
     Route: 065
     Dates: start: 20230715, end: 20230715
  57. SOLU-MEDROL [Concomitant]
     Active Substance: METHYLPREDNISOLONE SODIUM SUCCINATE
     Dosage: 125 MG /DAY, STEROID PULSE
     Route: 065
     Dates: start: 20230716, end: 20230716
  58. SOLU-MEDROL [Concomitant]
     Active Substance: METHYLPREDNISOLONE SODIUM SUCCINATE
     Dosage: 62.5 MG /DAY, STEROID PULSE
     Route: 065
     Dates: start: 20230717, end: 20230717
  59. SOLU-MEDROL [Concomitant]
     Active Substance: METHYLPREDNISOLONE SODIUM SUCCINATE
     Dosage: 125 MG /DAY, STEROID PULSE
     Route: 065
     Dates: start: 20230731, end: 20230731

REACTIONS (21)
  - Transplant rejection [Recovered/Resolved]
  - Hepatic necrosis [Recovering/Resolving]
  - Hepatic enzyme increased [Recovering/Resolving]
  - Transplant rejection [Recovering/Resolving]
  - Cholangitis [Recovering/Resolving]
  - Histiocytosis [Unknown]
  - Hepatitis [Recovering/Resolving]
  - Enterocolitis bacterial [Recovered/Resolved]
  - Pyrexia [Recovered/Resolved]
  - Headache [Recovered/Resolved]
  - Hypophagia [Recovered/Resolved]
  - General physical health deterioration [Recovered/Resolved]
  - Klebsiella bacteraemia [Unknown]
  - Tachycardia [Unknown]
  - Blood pressure decreased [Unknown]
  - Enterocolitis bacterial [Recovered/Resolved]
  - Abdominal pain [Unknown]
  - Diarrhoea [Unknown]
  - Vomiting [Unknown]
  - Malaise [Unknown]
  - Tremor [Unknown]

NARRATIVE: CASE EVENT DATE: 20230130
